FAERS Safety Report 23745547 (Version 1)
Quarter: 2024Q2

REPORT INFORMATION
  Report Type: Spontaneous
  Country: GB (occurrence: GB)
  Receive Date: 20240416
  Receipt Date: 20240416
  Transmission Date: 20240716
  Serious: No
  Sender: FDA-Public Use
  Company Number: GB-ALKEM LABORATORIES LIMITED-GB-ALKEM-2023-14950

PATIENT
  Age: 29 Year
  Sex: Male

DRUGS (7)
  1. ARIPIPRAZOLE [Suspect]
     Active Substance: ARIPIPRAZOLE
     Indication: Schizoaffective disorder
     Dosage: UP TO 400 MG MONTHLY (LONG-ACTING INJECTION)
     Route: 065
  2. OLANZAPINE [Suspect]
     Active Substance: OLANZAPINE
     Indication: Schizoaffective disorder
     Dosage: UP TO 300 MG FORTNIGHTLY
     Route: 065
  3. CLOZAPINE [Suspect]
     Active Substance: CLOZAPINE
     Indication: Schizoaffective disorder
     Dosage: UNK
     Route: 065
  4. CLOZAPINE [Suspect]
     Active Substance: CLOZAPINE
     Dosage: 400 MILLIGRAM, HS (TITRATED  DOSE)
     Route: 065
  5. CLOZAPINE [Suspect]
     Active Substance: CLOZAPINE
     Dosage: 300 MILLIGRAM, QD (RE TITRATED DOSE)
     Route: 065
  6. FLUPENTIXOL DECANOATE [Suspect]
     Active Substance: FLUPENTIXOL DECANOATE
     Indication: Schizoaffective disorder
     Dosage: UP TO 80 MG FORTNIGHTLY
     Route: 065
  7. PALIPERIDONE PALMITATE [Suspect]
     Active Substance: PALIPERIDONE PALMITATE
     Indication: Schizoaffective disorder
     Dosage: UP TO 150 MG MONTHLY
     Route: 065

REACTIONS (7)
  - Mental disorder [Unknown]
  - Constipation [Unknown]
  - Weight increased [Not Recovered/Not Resolved]
  - Salivary hypersecretion [Unknown]
  - Tachycardia [Unknown]
  - Blood triglycerides abnormal [Unknown]
  - Therapy partial responder [Unknown]
